FAERS Safety Report 10918339 (Version 1)
Quarter: 2015Q1

REPORT INFORMATION
  Report Type: Spontaneous
  Country: US (occurrence: US)
  Receive Date: 20150316
  Receipt Date: 20150316
  Transmission Date: 20150721
  Serious: No
  Sender: FDA-Public Use
  Company Number: US-GALDERMA-US14000378

PATIENT
  Age: 57 Year
  Sex: Female

DRUGS (11)
  1. UNSPECIFIED MULTIPLE BRANDS OF MAKE UP [Concomitant]
     Route: 061
  2. ESTEE LAUDER UNSPECIFIED LOTION [Concomitant]
     Indication: DRY SKIN PROPHYLAXIS
     Route: 061
  3. TRI-LUMA [Suspect]
     Active Substance: FLUOCINOLONE ACETONIDE\HYDROQUINONE\TRETINOIN
     Indication: SKIN WRINKLING
     Route: 061
     Dates: start: 20140122, end: 20140125
  4. BATH AND BODY LAY IT ON THICK SHEA BUTTER [Concomitant]
     Indication: DRY SKIN PROPHYLAXIS
     Route: 061
  5. MULTIVITAMIN [Concomitant]
     Active Substance: VITAMINS
  6. OMEGA 3, CQ10 [Concomitant]
     Route: 048
  7. CETAPHIL FACE WASH [Concomitant]
     Indication: THERAPEUTIC SKIN CARE TOPICAL
     Route: 061
  8. BABY OIL [Concomitant]
     Active Substance: MINERAL OIL
     Indication: DRY SKIN PROPHYLAXIS
     Route: 061
  9. LIPITOR [Concomitant]
     Active Substance: ATORVASTATIN CALCIUM
     Route: 048
  10. UNSPECIFIED MOISTURIZING CREAM WITH SUNSCREEN [Concomitant]
     Indication: DRY SKIN PROPHYLAXIS
     Route: 061
  11. EFFEXOR XR [Concomitant]
     Active Substance: VENLAFAXINE HYDROCHLORIDE
     Route: 048

REACTIONS (10)
  - Paraesthesia [Recovered/Resolved]
  - Dry skin [Recovered/Resolved]
  - Skin fissures [Recovered/Resolved]
  - Skin burning sensation [Recovered/Resolved]
  - Product use issue [Recovered/Resolved]
  - Hypersensitivity [Recovered/Resolved]
  - Skin tightness [Recovered/Resolved]
  - Skin exfoliation [Recovered/Resolved]
  - Erythema [Recovered/Resolved]
  - Drug administered at inappropriate site [Recovered/Resolved]

NARRATIVE: CASE EVENT DATE: 20140122
